FAERS Safety Report 5030716-8 (Version None)
Quarter: 2006Q2

REPORT INFORMATION
  Report Type: 
  Country: None (occurrence: None)
  Receive Date: 20060615
  Receipt Date: 20060523
  Transmission Date: 20061013
  Serious: Yes (Hospitalization)
  Sender: FDA-Public Use
  Company Number: 2006BH010454

PATIENT
  Age: 61 Year
  Sex: Male

DRUGS (7)
  1. SODIUM CHLORIDE [Suspect]
     Indication: BRONCHITIS
     Dosage: 250 ML AS NEEDED IV
     Route: 042
     Dates: start: 20060428, end: 20060502
  2. SOLU-MEDROL [Suspect]
     Indication: BRONCHITIS
     Dosage: 40 MG AS NEEDED; IV DRIP
     Route: 041
     Dates: start: 20060428, end: 20060502
  3. SYNTOPHYLLIN (AMINOPHYLLINE) [Suspect]
     Indication: BRONCHITIS
     Dosage: 1 VIAL; AS NEEDED; IV DRIP
     Route: 041
     Dates: start: 20060428, end: 20060502
  4. BUDESONIDE [Concomitant]
  5. OXIS [Concomitant]
  6. FURON [Concomitant]
  7. AROVENT [Concomitant]

REACTIONS (5)
  - BODY TEMPERATURE INCREASED [None]
  - CHILLS [None]
  - TACHYCARDIA [None]
  - TREMOR [None]
  - WHEEZING [None]
